FAERS Safety Report 21603985 (Version 1)
Quarter: 2022Q4

REPORT INFORMATION
  Report Type: Spontaneous
  Country: US (occurrence: US)
  Receive Date: 20221116
  Receipt Date: 20221116
  Transmission Date: 20230112
  Serious: No
  Sender: FDA-Public Use
  Company Number: US-OptiNose US, Inc-2021OPT000252

PATIENT
  Age: 76 Year
  Sex: Female

DRUGS (4)
  1. XHANCE [Suspect]
     Active Substance: FLUTICASONE PROPIONATE
     Indication: Nasal congestion
     Route: 045
     Dates: start: 20210903
  2. PREDNISONE [Concomitant]
     Active Substance: PREDNISONE
     Indication: Giant cell arteritis
     Route: 065
  3. PREDNISONE [Concomitant]
     Active Substance: PREDNISONE
     Indication: Trigeminal neuralgia
  4. PREDNISONE [Concomitant]
     Active Substance: PREDNISONE
     Indication: Headache

REACTIONS (4)
  - Eye pain [Unknown]
  - Eye swelling [Unknown]
  - Therapeutic product effective for unapproved indication [Unknown]
  - Product use in unapproved indication [Unknown]
